FAERS Safety Report 19217842 (Version 1)
Quarter: 2021Q2

REPORT INFORMATION
  Report Type: Spontaneous
  Country: US (occurrence: US)
  Receive Date: 20210505
  Receipt Date: 20210505
  Transmission Date: 20210717
  Serious: Yes (Hospitalization, Other)
  Sender: FDA-Public Use
  Company Number: US-GLAXOSMITHKLINE-USCH2021GSK023238

PATIENT
  Age: 71 Year
  Sex: Female

DRUGS (2)
  1. CALCIUM CITRATE [Suspect]
     Active Substance: CALCIUM CITRATE
     Indication: PRODUCT USED FOR UNKNOWN INDICATION
     Dosage: UNK
  2. TUMS [Suspect]
     Active Substance: CALCIUM CARBONATE
     Dosage: 6 DF, 1D

REACTIONS (6)
  - Hypercalcaemia [Recovered/Resolved]
  - Confusional state [Unknown]
  - Milk-alkali syndrome [Unknown]
  - Fall [Unknown]
  - Mucosal dryness [Unknown]
  - Overdose [Unknown]
